FAERS Safety Report 6984717 (Version 3)
Quarter: 2014Q1

REPORT INFORMATION
  Report Type: Spontaneous
  Country: US (occurrence: US)
  Receive Date: 20090501
  Receipt Date: 20140325
  Transmission Date: 20141002
  Serious: Yes (Other)
  Sender: FDA-Public Use
  Company Number: US-ALEXION-A200700129

PATIENT
  Age: 28 Year
  Sex: Female

DRUGS (18)
  1. SOLIRIS [Suspect]
     Indication: PAROXYSMAL NOCTURNAL HAEMOGLOBINURIA
     Dosage: 600 MG, SINGLE
     Route: 042
     Dates: start: 20070619, end: 20070619
  2. SOLIRIS [Suspect]
     Dosage: 900 MG, SINGLE
     Route: 042
     Dates: start: 20071120, end: 20071120
  3. SOLIRIS [Suspect]
     Dosage: 900 MG, SINGLE
     Route: 042
     Dates: start: 20071204, end: 20071204
  4. SOLIRIS [Suspect]
     Dosage: 900 MG, SINGLE
     Route: 042
     Dates: start: 20071218, end: 20071218
  5. SOLIRIS [Suspect]
     Dosage: 900 MG, SINGLE
     Route: 042
     Dates: start: 20080311, end: 20080311
  6. SOLIRIS [Suspect]
     Dosage: 900 MG, SINGLE
     Route: 042
     Dates: start: 20080325, end: 20080325
  7. SOLIRIS [Suspect]
     Dosage: UNK
     Route: 042
     Dates: start: 20070619
  8. FOLIC ACID [Concomitant]
     Indication: PAROXYSMAL NOCTURNAL HAEMOGLOBINURIA
     Route: 048
  9. SOLU-MEDROL [Concomitant]
     Route: 048
  10. LOVENOX                            /00889602/ [Concomitant]
     Route: 048
  11. LEVOTHYROXINE [Concomitant]
     Indication: HYPOTHYROIDISM
     Route: 048
  12. AMITRIPTYLINE [Concomitant]
     Route: 048
  13. ESTROGEN NOS [Concomitant]
     Dosage: UNK, QD
     Route: 048
  14. TYLENOL WITH CODEINE [Concomitant]
     Dosage: UNK, PRN
     Route: 048
  15. PHENERGAN                          /00033001/ [Concomitant]
     Dosage: UNK, PRN
     Route: 048
  16. PROTONIX                           /01263201/ [Concomitant]
     Dosage: UNK, QD
     Route: 048
  17. SOLUTIONS FOR PARENTERAL NUTRITION [Concomitant]
     Indication: INTESTINAL ISCHAEMIA
     Dosage: UNK, QD
     Route: 042
     Dates: start: 200706, end: 200711
  18. SOLUTIONS FOR PARENTERAL NUTRITION [Concomitant]
     Dosage: UNK, QD
     Route: 042
     Dates: start: 20071206

REACTIONS (18)
  - Blood culture positive [Not Recovered/Not Resolved]
  - Catheter site infection [Recovered/Resolved]
  - Staphylococcal infection [Unknown]
  - Liver function test abnormal [Recovering/Resolving]
  - Abscess limb [Unknown]
  - Anaemia [Not Recovered/Not Resolved]
  - Central venous catheter removal [Unknown]
  - Arthralgia [Not Recovered/Not Resolved]
  - Quality of life decreased [Unknown]
  - Dyspnoea [Unknown]
  - Condition aggravated [Not Recovered/Not Resolved]
  - Catheter placement [Unknown]
  - Haemolysis [Recovered/Resolved]
  - Jaundice [Recovered/Resolved]
  - Abdominal pain [Unknown]
  - Fatigue [Unknown]
  - Headache [Unknown]
  - Anxiety [Unknown]
